FAERS Safety Report 13992983 (Version 20)
Quarter: 2018Q3

REPORT INFORMATION
  Report Type: Spontaneous
  Country: IT (occurrence: IT)
  Receive Date: 20170920
  Receipt Date: 20180928
  Transmission Date: 20181010
  Serious: Yes (Hospitalization, Other)
  Sender: FDA-Public Use
  Company Number: IT-PFIZER INC-2017406051

PATIENT
  Age: 16 Year
  Sex: Female

DRUGS (11)
  1. TRIAZOLAM. [Interacting]
     Active Substance: TRIAZOLAM
     Indication: INTENTIONAL SELF-INJURY
     Dosage: 2.5 MG, ONCE/SINGLE (TOTAL)
     Route: 048
     Dates: start: 20170905, end: 20170905
  2. DEPAKIN [Interacting]
     Active Substance: VALPROATE SODIUM
     Indication: INTELLECTUAL DISABILITY
  3. ZOLPIDEM [Interacting]
     Active Substance: ZOLPIDEM\ZOLPIDEM TARTRATE
     Dosage: 2.5 MG, 1X/DAY
     Dates: start: 20170905, end: 20170905
  4. ALCOHOL. [Interacting]
     Active Substance: ALCOHOL
     Dosage: UNK, 1X/DAY, 1 OT,UNSPECIFIED(TOTAL)
     Route: 048
     Dates: start: 20170905, end: 20170905
  5. RISPERDAL [Interacting]
     Active Substance: RISPERIDONE
     Indication: ATTENTION DEFICIT/HYPERACTIVITY DISORDER
     Dosage: 75 ML, ONCE/SINGLE (TOTAL)
     Route: 048
     Dates: start: 20170905, end: 20170905
  6. LORAZEPAM. [Suspect]
     Active Substance: LORAZEPAM
     Indication: INTENTIONAL SELF-INJURY
     Dosage: 75 MG, ONCE/SINGLE
     Route: 048
     Dates: start: 20170905, end: 20170905
  7. LORMETAZEPAM [Interacting]
     Active Substance: LORMETAZEPAM
     Indication: INTENTIONAL SELF-INJURY
     Dosage: 10 MG, ONCE/SINGLE (TOTAL)
     Route: 048
     Dates: start: 20170905, end: 20170905
  8. DEPAKIN [Interacting]
     Active Substance: VALPROATE SODIUM
     Indication: ATTENTION DEFICIT/HYPERACTIVITY DISORDER
     Dosage: UNK
     Route: 048
  9. RISPERDAL [Interacting]
     Active Substance: RISPERIDONE
     Indication: INTELLECTUAL DISABILITY
  10. RISPERDAL [Interacting]
     Active Substance: RISPERIDONE
     Indication: INTENTIONAL SELF-INJURY
  11. VENLAFAXINE HCL [Interacting]
     Active Substance: VENLAFAXINE HYDROCHLORIDE
     Indication: INTENTIONAL SELF-INJURY
     Dosage: 150 MG, ONCE/SINGLE (TOTAL)
     Route: 048
     Dates: start: 20170905, end: 20170905

REACTIONS (13)
  - Loss of consciousness [Unknown]
  - Drug interaction [Unknown]
  - Sopor [Unknown]
  - Intellectual disability [Unknown]
  - Intentional overdose [Unknown]
  - Alcohol interaction [Unknown]
  - Intentional product misuse [Unknown]
  - Aphasia [Unknown]
  - Drug abuse [Unknown]
  - Contraindicated product administered [Unknown]
  - Concomitant disease aggravated [Unknown]
  - Intentional self-injury [Unknown]
  - Attention deficit/hyperactivity disorder [Unknown]

NARRATIVE: CASE EVENT DATE: 20170905
